FAERS Safety Report 5272852-7 (Version None)
Quarter: 2007Q1

REPORT INFORMATION
  Report Type: 
  Country: None (occurrence: None)
  Receive Date: 20070322
  Receipt Date: 20070317
  Transmission Date: 20070707
  Serious: Yes (Hospitalization)
  Sender: FDA-Public Use
  Company Number: 2007UW05366

PATIENT
  Age: 45 Year
  Sex: Female
  Weight: 68.2 kg

DRUGS (1)
  1. NEXIUM [Suspect]
     Route: 048

REACTIONS (3)
  - DEHYDRATION [None]
  - DIZZINESS [None]
  - SYNCOPE [None]
